FAERS Safety Report 15709890 (Version 4)
Quarter: 2019Q1

REPORT INFORMATION
  Report Type: Spontaneous
  Country: GB (occurrence: GB)
  Receive Date: 20181211
  Receipt Date: 20190131
  Transmission Date: 20190417
  Serious: Yes (Life-Threatening, Hospitalization, Other)
  Sender: FDA-Public Use
  Company Number: GB-PFIZER INC-2018501359

PATIENT
  Age: 50 Year
  Sex: Female

DRUGS (2)
  1. BUPIVACAINE. [Suspect]
     Active Substance: BUPIVACAINE
     Indication: BURSITIS
     Dosage: 20 ML, SINGLE (ADMINISTERED ONCE)
     Dates: start: 20180511
  2. DEPO-MEDRONE [Suspect]
     Active Substance: METHYLPREDNISOLONE
     Indication: BURSITIS
     Dosage: 0.5MG IN 40ML, SINGLE
     Dates: start: 20180511

REACTIONS (26)
  - Depression [Unknown]
  - Feeling abnormal [Unknown]
  - Malaise [Not Recovered/Not Resolved]
  - Eye pain [Not Recovered/Not Resolved]
  - Blindness [Not Recovered/Not Resolved]
  - Dry skin [Unknown]
  - Glaucoma [Unknown]
  - Dry mouth [Unknown]
  - Vomiting [Unknown]
  - Dysgeusia [Unknown]
  - Panic attack [Not Recovered/Not Resolved]
  - Joint noise [Unknown]
  - Suicidal ideation [Unknown]
  - Hair injury [Unknown]
  - Cataract [Unknown]
  - Decreased appetite [Unknown]
  - Dry eye [Unknown]
  - Spondylitis [Unknown]
  - Abnormal behaviour [Unknown]
  - Weight decreased [Unknown]
  - Bedridden [Recovered/Resolved]
  - Eye irritation [Not Recovered/Not Resolved]
  - Herpes virus infection [Unknown]
  - Flushing [Recovered/Resolved]
  - Swelling face [Unknown]
  - Paraesthesia [Unknown]

NARRATIVE: CASE EVENT DATE: 2018
